FAERS Safety Report 4511396-4 (Version None)
Quarter: 2004Q4

REPORT INFORMATION
  Report Type: 
  Country: None (occurrence: None)
  Receive Date: 20041129
  Receipt Date: 20040401
  Transmission Date: 20050328
  Serious: Yes (Hospitalization)
  Sender: FDA-Public Use
  Company Number: US-BRISTOL-MYERS SQUIBB COMPANY-12550935

PATIENT
  Age: 26 Year
  Sex: Female

DRUGS (5)
  1. ABILIFY [Suspect]
     Indication: PARANOIA
     Dosage: INIT AT 10 MG/DAY ^SEVERAL MONTHS^ AGO;INCR TO 30 MG/DAY 1 WK PRIOR TO  REPORT. THEN D/C.
     Route: 048
     Dates: start: 20030401, end: 20040301
  2. ABILIFY [Suspect]
     Indication: SCHIZOAFFECTIVE DISORDER
     Dosage: INIT AT 10 MG/DAY ^SEVERAL MONTHS^ AGO;INCR TO 30 MG/DAY 1 WK PRIOR TO  REPORT. THEN D/C.
     Route: 048
     Dates: start: 20030401, end: 20040301
  3. REMERON [Concomitant]
  4. TEGRETOL [Concomitant]
  5. KLONOPIN [Concomitant]

REACTIONS (4)
  - AGGRESSION [None]
  - SUICIDAL IDEATION [None]
  - TARDIVE DYSKINESIA [None]
  - TORTICOLLIS [None]
